FAERS Safety Report 19705646 (Version 2)
Quarter: 2021Q3

REPORT INFORMATION
  Report Type: Report from Study
  Country: None (occurrence: US)
  Receive Date: 20210817
  Receipt Date: 20210928
  Transmission Date: 20211014
  Serious: Yes (Hospitalization)
  Sender: FDA-Public Use
  Company Number: US-ABBVIE-21K-163-4036809-00

PATIENT
  Sex: Female

DRUGS (1)
  1. HUMIRA [Suspect]
     Active Substance: ADALIMUMAB
     Indication: CROHN^S DISEASE
     Route: 058

REACTIONS (6)
  - Stress [Unknown]
  - Haemorrhage [Recovered/Resolved]
  - Inflammation [Recovered/Resolved]
  - Inflammation [Recovering/Resolving]
  - Colitis ulcerative [Unknown]
  - Feeling hot [Unknown]

NARRATIVE: CASE EVENT DATE: 2020
